FAERS Safety Report 24913330 (Version 3)
Quarter: 2025Q1

REPORT INFORMATION
  Report Type: Report from Study
  Country: CA (occurrence: CA)
  Receive Date: 20250201
  Receipt Date: 20250228
  Transmission Date: 20250409
  Serious: Yes (Hospitalization, Other)
  Sender: TAKEDA
  Company Number: CA-TAKEDA-2021TUS077354

PATIENT
  Sex: Female

DRUGS (13)
  1. VEDOLIZUMAB [Suspect]
     Active Substance: VEDOLIZUMAB
     Indication: Crohn^s disease
  2. VEDOLIZUMAB [Suspect]
     Active Substance: VEDOLIZUMAB
  3. LYRICA [Concomitant]
     Active Substance: PREGABALIN
  4. PROZAC [Concomitant]
     Active Substance: FLUOXETINE HYDROCHLORIDE
  5. METAMUCIL [Concomitant]
     Active Substance: PLANTAGO SEED
  6. RIVOTRIL [Concomitant]
     Active Substance: CLONAZEPAM
  7. NEXIUM [Concomitant]
     Active Substance: ESOMEPRAZOLE MAGNESIUM
  8. WELLBUTRIN [Concomitant]
     Active Substance: BUPROPION HYDROCHLORIDE
  9. FAMVIR [Concomitant]
     Active Substance: FAMCICLOVIR
  10. CALCIUM [Concomitant]
     Active Substance: CALCIUM
  11. ZYPREXA [Concomitant]
     Active Substance: OLANZAPINE
  12. MIRTAZAPINE [Concomitant]
     Active Substance: MIRTAZAPINE
  13. IMURAN [Concomitant]
     Active Substance: AZATHIOPRINE

REACTIONS (4)
  - Hip fracture [Unknown]
  - Fall [Unknown]
  - Pain [Unknown]
  - Mobility decreased [Recovering/Resolving]
